FAERS Safety Report 5626516-8 (Version None)
Quarter: 2008Q1

REPORT INFORMATION
  Report Type: 
  Country: None (occurrence: None)
  Receive Date: 20080214
  Receipt Date: 20080205
  Transmission Date: 20080703
  Serious: Yes (Hospitalization, Other)
  Sender: FDA-Public Use
  Company Number: JP-ABBOTT-07P-087-0431178-00

PATIENT
  Sex: Female
  Weight: 32.9 kg

DRUGS (6)
  1. CEFZON [Suspect]
     Indication: NASOPHARYNGITIS
     Route: 048
     Dates: start: 20071112, end: 20071124
  2. PL GRAN. [Suspect]
     Indication: NASOPHARYNGITIS
     Route: 048
     Dates: start: 20071112, end: 20071124
  3. CEFPODOXIME PROXETIL [Suspect]
     Indication: NASOPHARYNGITIS
     Route: 048
     Dates: start: 20071115, end: 20071124
  4. KAKKON-TO [Suspect]
     Indication: NASOPHARYNGITIS
     Route: 048
     Dates: start: 20071106, end: 20071124
  5. ALDIOXA [Suspect]
     Indication: DRUG USE FOR UNKNOWN INDICATION
     Route: 048
     Dates: start: 20071112, end: 20071124
  6. SODIUM GUALENATE [Suspect]
     Indication: DRUG USE FOR UNKNOWN INDICATION
     Route: 048
     Dates: start: 20071111, end: 20071124

REACTIONS (5)
  - EYE DISCHARGE [None]
  - OCULAR HYPERAEMIA [None]
  - ORAL INTAKE REDUCED [None]
  - PYREXIA [None]
  - STEVENS-JOHNSON SYNDROME [None]
